FAERS Safety Report 6983966-5 (Version None)
Quarter: 2010Q3

REPORT INFORMATION
  Report Type: 
  Country: None (occurrence: None)
  Receive Date: 20100915
  Receipt Date: 20090616
  Transmission Date: 20110219
  Serious: No
  Sender: FDA-Public Use
  Company Number: US-WYE-H09045809

PATIENT
  Sex: Female

DRUGS (2)
  1. PRISTIQ [Suspect]
     Dosage: 50 MG (FREQUENCY UNSPECIFIED)
     Dates: start: 20090211
  2. MOTRIN [Suspect]
     Indication: PREMENSTRUAL SYNDROME
     Dosage: 300 MG (FREQUENCY UNSPECIFIED)
     Dates: end: 20090101

REACTIONS (1)
  - CONTUSION [None]
